FAERS Safety Report 6414113-6 (Version None)
Quarter: 2009Q4

REPORT INFORMATION
  Report Type: 
  Country: None (occurrence: None)
  Receive Date: 20091026
  Receipt Date: 20091021
  Transmission Date: 20100525
  Serious: Yes (Death, Hospitalization, Disabling)
  Sender: FDA-Public Use
  Company Number: PR-MERCK-0909USA00460

PATIENT
  Sex: Female

DRUGS (1)
  1. INVANZ [Suspect]
     Indication: DIABETIC FOOT INFECTION
     Route: 042

REACTIONS (2)
  - CONVULSION [None]
  - RENAL FAILURE [None]
